FAERS Safety Report 9547004 (Version 1)
Quarter: 2013Q2

REPORT INFORMATION
  Report Type: Spontaneous
  Country: US (occurrence: None)
  Receive Date: 20130606
  Receipt Date: 20130606
  Transmission Date: 20140414
  Serious: No
  Sender: FDA-Public Use
  Company Number: 2013PROUSA02622

PATIENT
  Age: 76 Year
  Sex: Male
  Weight: 84.6 kg

DRUGS (11)
  1. PROVENGE (SIPULEUCEL-T) SUSPENSION, 250ML [Suspect]
     Indication: PROSTATE CANCER METASTATIC
     Dosage: 250 ML, SINGLE, INTRAVENOUS
     Route: 042
     Dates: start: 20130221, end: 20130221
  2. VENLAFAXINE HYDROCHLORIDE (VENLAFAXINE HYDROCHLORIDE) [Concomitant]
  3. LISINOPRIL (LISINOPRIL) [Concomitant]
  4. CALCIUM +D (CALCIUM CARBONATE, COLECALCIFEROL) [Concomitant]
  5. VITAMIN D3 (COLECALCIFEROL) [Concomitant]
  6. ASA (ACETYLSALICYLIC ACID) [Concomitant]
  7. CETIRIZINE HYDROCHLORIDE (CETIRIZINE HYDROCHLORIDE) [Concomitant]
  8. 3)?MULTIVITAMINS (ASCORBIC ACID, ERGOCALCIFEROL, FOLIC ACID, NICOTINAMIDE, PANTHENOL, RETINOL, RIBOFLAVIN, THIAMINE HYDROCHLORIDE) [Concomitant]
  9. ZOLADEX (GOSERELIN ACETATE) [Concomitant]
  10. POLYETHYLENE GLYCOL (MACROGOL) [Concomitant]
  11. TERAZOSIN (TERAZOSIN HYDROCHLORIDE) [Concomitant]

REACTIONS (1)
  - Gram stain positive [None]
